FAERS Safety Report 6577066-6 (Version None)
Quarter: 2010Q1

REPORT INFORMATION
  Report Type: 
  Country: None (occurrence: None)
  Receive Date: 20100210
  Receipt Date: 20100209
  Transmission Date: 20100710
  Serious: Yes (Hospitalization)
  Sender: FDA-Public Use
  Company Number: FR-SANOFI-AVENTIS-2010SA007435

PATIENT
  Age: 81 Year
  Sex: Female

DRUGS (7)
  1. TRIATEC [Suspect]
     Route: 048
     Dates: start: 20070622, end: 20070714
  2. LASILIX [Suspect]
     Route: 048
     Dates: start: 20070622, end: 20070711
  3. ALDACTONE [Suspect]
     Route: 048
     Dates: start: 20070622, end: 20070711
  4. PREVISCAN [Concomitant]
     Route: 048
  5. LANTUS [Concomitant]
     Route: 051
  6. DILTIAZEM [Concomitant]
     Indication: DRUG USE FOR UNKNOWN INDICATION
     Route: 048
  7. DIFFU K [Concomitant]
     Indication: DRUG USE FOR UNKNOWN INDICATION
     Route: 048

REACTIONS (1)
  - TOXIC SKIN ERUPTION [None]
